FAERS Safety Report 20742360 (Version 1)
Quarter: 2022Q2

REPORT INFORMATION
  Report Type: Spontaneous
  Country: US (occurrence: US)
  Receive Date: 20220424
  Receipt Date: 20220424
  Transmission Date: 20220720
  Serious: Yes (Hospitalization, Other)
  Sender: FDA-Public Use
  Company Number: US-TEVA-2022-US-2029738

PATIENT
  Age: 59 Year
  Sex: Male
  Weight: 81.65 kg

DRUGS (5)
  1. AMIODARONE [Suspect]
     Active Substance: AMIODARONE
     Indication: Ventricular tachycardia
     Dosage: 400 MILLIGRAM DAILY; ONE TABLET IN THE MORNING AND ONE AT NIGHT
     Route: 065
     Dates: start: 201705, end: 201710
  2. AMIODARONE [Suspect]
     Active Substance: AMIODARONE
     Route: 065
  3. AMIODARONE [Suspect]
     Active Substance: AMIODARONE
     Dosage: ONE TABLET IN THE MORNING AND ONE AT NIGHT
     Route: 065
     Dates: start: 202109, end: 202111
  4. AMIODARONE [Suspect]
     Active Substance: AMIODARONE
     Dosage: ONE TABLET IN THE MORNING AND ONE AT NIGHT
     Route: 065
     Dates: start: 202202
  5. TYLENOL [Suspect]
     Active Substance: ACETAMINOPHEN
     Indication: Back pain
     Route: 065

REACTIONS (11)
  - Thrombosis [Not Recovered/Not Resolved]
  - Arrhythmia [Unknown]
  - Near death experience [Recovered/Resolved]
  - Drug withdrawal syndrome [Recovered/Resolved]
  - Feeling abnormal [Unknown]
  - Cyanosis [Recovered/Resolved]
  - Liver disorder [Unknown]
  - Lung disorder [Unknown]
  - Hepatic enzyme increased [Unknown]
  - Oxygen saturation decreased [Unknown]
  - Back pain [Unknown]

NARRATIVE: CASE EVENT DATE: 20030101
